FAERS Safety Report 6143070-5 (Version None)
Quarter: 2009Q2

REPORT INFORMATION
  Report Type: 
  Country: None (occurrence: None)
  Receive Date: 20090403
  Receipt Date: 20090325
  Transmission Date: 20091009
  Serious: Yes (Hospitalization)
  Sender: FDA-Public Use
  Company Number: DE-AMGEN-UK338244

PATIENT
  Sex: Male

DRUGS (4)
  1. PANITUMUMAB [Suspect]
     Indication: SQUAMOUS CELL CARCINOMA
     Route: 042
     Dates: start: 20090114
  2. CISPLATIN [Concomitant]
     Route: 042
     Dates: start: 20090114
  3. RADIATION THERAPY [Concomitant]
     Route: 065
     Dates: start: 20090114, end: 20090305
  4. CIPRAMIL [Concomitant]
     Route: 065

REACTIONS (1)
  - DYSPNOEA [None]
